FAERS Safety Report 4914314-X (Version None)
Quarter: 2006Q1

REPORT INFORMATION
  Report Type: 
  Country: None (occurrence: None)
  Receive Date: 20060213
  Receipt Date: 20060202
  Transmission Date: 20060701
  Serious: Yes (Other)
  Sender: FDA-Public Use
  Company Number: 2006BH002049

PATIENT
  Age: 53 Year
  Sex: Female

DRUGS (7)
  1. REGLAN [Suspect]
  2. PEG-INTRON [Suspect]
     Indication: HEPATITIS C
     Dosage: SC
     Route: 058
     Dates: start: 20051118, end: 20060101
  3. RIBAVIRIN [Suspect]
     Indication: HEPATITIS C
     Dosage: PO
     Route: 048
     Dates: start: 20051118, end: 20060101
  4. ADVAIR DISKUS 100/50 [Concomitant]
  5. ALBUTEROL [Concomitant]
  6. IPRATROPIUM BROMIDE [Concomitant]
  7. SPIRIVA [Concomitant]

REACTIONS (16)
  - ANOREXIA [None]
  - BLOOD GLUCOSE INCREASED [None]
  - DEHYDRATION [None]
  - DEPRESSION [None]
  - DRUG HYPERSENSITIVITY [None]
  - DRY MOUTH [None]
  - EXCITABILITY [None]
  - EXTRAPYRAMIDAL DISORDER [None]
  - HEADACHE [None]
  - HYPOTHYROIDISM [None]
  - INJECTION SITE INDURATION [None]
  - INSOMNIA [None]
  - MEMORY IMPAIRMENT [None]
  - PAROSMIA [None]
  - TINNITUS [None]
  - VOMITING [None]
